FAERS Safety Report 7313915-1 (Version None)
Quarter: 2011Q1

REPORT INFORMATION
  Report Type: 
  Country: None (occurrence: None)
  Receive Date: 20110225
  Receipt Date: 20110217
  Transmission Date: 20110831
  Serious: Yes (Hospitalization)
  Sender: FDA-Public Use
  Company Number: IT-BRISTOL-MYERS SQUIBB COMPANY-15548506

PATIENT
  Age: 83 Year
  Sex: Male

DRUGS (6)
  1. DILATREND [Concomitant]
  2. ENAPREN [Concomitant]
  3. SIMVASTATIN [Concomitant]
     Dosage: SIMVASTATIN SANDOZ
  4. COUMADIN [Concomitant]
  5. IRINOTECAN HCL [Suspect]
     Indication: COLON CANCER
     Dosage: IRINOTECAN HOSPIRA INTER ON:30NOV10
     Route: 042
     Dates: start: 20101116
  6. ERBITUX [Suspect]
     Indication: COLON CANCER
     Dosage: STRENGTH:5MG/ML INTER ON:30NOV10
     Route: 042
     Dates: start: 20101116

REACTIONS (5)
  - ABDOMINAL PAIN [None]
  - NAUSEA [None]
  - DYSPHAGIA [None]
  - PYREXIA [None]
  - DIARRHOEA [None]
